FAERS Safety Report 15696452 (Version 2)
Quarter: 2018Q4

REPORT INFORMATION
  Report Type: Spontaneous
  Country: US (occurrence: US)
  Receive Date: 20181206
  Receipt Date: 20181206
  Transmission Date: 20190205
  Serious: Yes (Life-Threatening, Other)
  Sender: FDA-Public Use
  Company Number: PHHY2018US172023

PATIENT
  Age: 6 Day
  Sex: Male

DRUGS (5)
  1. CRYOPRECIPITATE [Concomitant]
     Active Substance: CRYOPRECIPITATED ANTIHEMOPHILIC FACTOR (HUMAN)
     Indication: HAEMOSTASIS
     Route: 065
  2. VINCRISTINE [Suspect]
     Active Substance: VINCRISTINE
     Indication: INTRAVASCULAR PAPILLARY ENDOTHELIAL HYPERPLASIA
     Dosage: 0.125 MG/KG, QW
     Route: 065
  3. SIROLIMUS. [Suspect]
     Active Substance: SIROLIMUS
     Indication: INTRAVASCULAR PAPILLARY ENDOTHELIAL HYPERPLASIA
     Dosage: 0.8 MG/M2, BID
     Route: 065
  4. PREDNISOLONE. [Suspect]
     Active Substance: PREDNISOLONE
     Dosage: UNK (WEANED BY 15 PERCENT EVERY 2 WEEKS)
     Route: 048
  5. PREDNISOLONE. [Suspect]
     Active Substance: PREDNISOLONE
     Indication: INTRAVASCULAR PAPILLARY ENDOTHELIAL HYPERPLASIA
     Dosage: 2 MG/KG, QD
     Route: 048

REACTIONS (6)
  - Haemorrhage [Recovered/Resolved]
  - Anaemia [Unknown]
  - Compartment syndrome [Unknown]
  - Pain in extremity [Unknown]
  - Therapy partial responder [Unknown]
  - Product use in unapproved indication [Unknown]
